FAERS Safety Report 8286797-1 (Version None)
Quarter: 2012Q2

REPORT INFORMATION
  Report Type: 
  Country: None (occurrence: None)
  Receive Date: 20120416
  Receipt Date: 20120409
  Transmission Date: 20120825
  Serious: Yes (Hospitalization)
  Sender: FDA-Public Use
  Company Number: JP-UCBSA-054116

PATIENT
  Age: 62 Year
  Sex: Male
  Weight: 51.9 kg

DRUGS (41)
  1. MICARDIS [Concomitant]
     Indication: HYPERTENSION
     Dosage: 20 MG
     Route: 048
     Dates: start: 20110801
  2. ASPIRIN [Concomitant]
     Indication: PROPHYLAXIS
     Dosage: 200 MG
     Route: 048
     Dates: start: 20110217
  3. WARFARIN SODIUM [Concomitant]
     Indication: PROPHYLAXIS
     Dosage: 2 MG
     Route: 048
     Dates: start: 20111201, end: 20120313
  4. WARFARIN SODIUM [Concomitant]
     Dosage: 1MG
     Route: 048
     Dates: start: 20120314, end: 20120101
  5. WARFARIN SODIUM [Concomitant]
     Dosage: DAILY DOSE:3 MG
     Route: 048
     Dates: start: 20120101
  6. MIRCERA [Concomitant]
     Indication: NEPHROGENIC ANAEMIA
     Dosage: 100MCG/3WKS
     Route: 041
     Dates: start: 20120124
  7. PLAVIX [Concomitant]
     Indication: EMBOLISM
     Dosage: 75 MG
     Route: 048
     Dates: start: 20120225
  8. PLAVIX [Concomitant]
     Dosage: 75 MG
     Route: 048
     Dates: start: 20070101, end: 20120218
  9. ALOSENN [Concomitant]
     Indication: CONSTIPATION
     Dosage: 2 G
     Route: 048
     Dates: start: 20100128
  10. CARVEDILOL [Concomitant]
     Dosage: DAILY DOSE:10 MG
     Route: 048
     Dates: start: 20120101
  11. AMIODARONE HYDROCHLORIDE [Concomitant]
     Indication: ARRHYTHMIA
     Dosage: 200 MG
     Dates: start: 20110801
  12. TIMOLOL MALEATE [Concomitant]
     Indication: GLAUCOMA
     Dosage: DAILY DOSE:2DF
     Route: 047
     Dates: start: 20100101
  13. ACETAMINOPHEN [Concomitant]
     Route: 048
  14. NICARDIPINE HCL [Concomitant]
     Dosage: DAILY DOSE:10 MG
  15. CINACALCET HYDROCHLORIDE [Concomitant]
     Indication: HYPERPARATHYROIDISM
     Dosage: 25 MG
     Route: 048
     Dates: start: 20111105
  16. CALCIUM CARBONATE [Concomitant]
     Indication: HYPERPHOSPHATAEMIA
     Dosage: 1500MG
     Route: 048
     Dates: start: 20120309
  17. OXAROL [Concomitant]
     Indication: HYPERPARATHYROIDISM SECONDARY
     Dosage: 2.5 MCG/3WEEKS
     Route: 041
     Dates: start: 20070101
  18. CARVEDILOL [Concomitant]
     Dosage: 10 MG
     Route: 048
     Dates: start: 20120302, end: 20120101
  19. IRON SUCROSE [Concomitant]
     Indication: NEPHROGENIC ANAEMIA
     Dosage: 40 MG
     Route: 042
     Dates: start: 20120209
  20. HEPARIN SODIUM [Concomitant]
     Dosage: 300 DF/3WEEKS
     Dates: end: 20120306
  21. AMIODARONE HYDROCHLORIDE [Concomitant]
     Indication: PROPHYLAXIS
     Dosage: 200 MG
     Dates: start: 20110801
  22. DALTEPARIN SODIUM [Concomitant]
     Indication: ANTICOAGULANT THERAPY
     Dosage: 3000DF/3WKS
     Dates: start: 20120309
  23. KEPPRA [Suspect]
     Route: 048
     Dates: start: 20120310, end: 20120310
  24. LANSOPRAZOLE [Concomitant]
     Indication: PROPHYLAXIS
     Dosage: 15 MG
     Route: 048
     Dates: start: 20070101
  25. ADALAT CC [Concomitant]
     Indication: HYPERTENSION
     Dosage: 30 MG
     Route: 048
     Dates: start: 20110801
  26. WARFARIN SODIUM [Concomitant]
     Dosage: 1MG
     Route: 048
     Dates: start: 20120314, end: 20120101
  27. CALCIUM CARBONATE [Concomitant]
     Dosage: 3000 MG
     Dates: start: 20120209, end: 20120308
  28. CLEANAL [Concomitant]
     Indication: PRODUCTIVE COUGH
     Dosage: 1200 MG
     Route: 048
     Dates: start: 20110801
  29. ASPIRIN [Concomitant]
     Indication: EMBOLISM
     Dosage: 200 MG
     Route: 048
     Dates: start: 20110217
  30. PLAVIX [Concomitant]
     Indication: PROPHYLAXIS
     Dosage: 75 MG
     Route: 048
     Dates: start: 20120225
  31. ADALAT CC [Concomitant]
     Dosage: DAILY DOSE:20 MG
     Route: 048
  32. CARVEDILOL [Concomitant]
     Indication: HYPERTENSION
     Dosage: 20 MG
     Route: 048
     Dates: start: 20070101, end: 20120301
  33. WARFARIN SODIUM [Concomitant]
     Indication: EMBOLISM
     Dosage: 2 MG
     Route: 048
     Dates: start: 20111201, end: 20120313
  34. WARFARIN SODIUM [Concomitant]
     Dosage: DAILY DOSE:3 MG
     Route: 048
     Dates: start: 20120101
  35. FOSRENOL [Concomitant]
     Indication: HYPERPHOSPHATAEMIA
     Dosage: 1500 MG
     Route: 048
     Dates: start: 20111020
  36. AZOPT [Concomitant]
     Indication: GLAUCOMA
     Dosage: DAILY DOSE:1DF
     Route: 047
     Dates: start: 20100101
  37. YOUPATCH [Concomitant]
     Indication: PUNCTURE SITE PAIN
     Route: 061
  38. PLAVIX [Concomitant]
     Dosage: 75 MG
     Route: 048
     Dates: start: 20070101, end: 20120218
  39. BUSERON [Concomitant]
     Dosage: 140MG
     Route: 041
     Dates: start: 20120306, end: 20120308
  40. TAPROS [Concomitant]
     Indication: GLAUCOMA
     Dosage: DAILY DOSE:1DF
     Route: 047
     Dates: start: 20100101
  41. AZUNOL [Concomitant]

REACTIONS (2)
  - PNEUMONIA [None]
  - ACUTE RESPIRATORY DISTRESS SYNDROME [None]
